FAERS Safety Report 9752202 (Version 1)
Quarter: 2013Q4

REPORT INFORMATION
  Report Type: Spontaneous
  Country: FI (occurrence: None)
  Receive Date: 20131211
  Receipt Date: 20131211
  Transmission Date: 20140711
  Serious: Yes (Hospitalization)
  Sender: FDA-Public Use
  Company Number: FI-20130007

PATIENT
  Age: 51 Year
  Sex: Female

DRUGS (1)
  1. DOTAREM (GADOTERIC ACID) [Suspect]
     Indication: NUCLEAR MAGNETIC RESONANCE IMAGING
     Dosage: 16 ML (16 ML, 1 IN 1 D), INTRAVENOUS (NOT OTHERWISE SPECIFIED)
     Route: 042
     Dates: start: 20131108, end: 20131108

REACTIONS (4)
  - Urticaria [None]
  - Chest pain [None]
  - Cough [None]
  - General physical health deterioration [None]
